FAERS Safety Report 20207539 (Version 2)
Quarter: 2022Q4

REPORT INFORMATION
  Report Type: Spontaneous
  Country: CH (occurrence: CH)
  Receive Date: 20211220
  Receipt Date: 20221007
  Transmission Date: 20230112
  Serious: Yes (Life-Threatening, Hospitalization, Other)
  Sender: FDA-Public Use
  Company Number: None

PATIENT
  Age: 63 Year
  Sex: Male

DRUGS (50)
  1. LORAZEPAM [Suspect]
     Active Substance: LORAZEPAM
     Dosage: 2.5 MG, 3X/DAY, AS NECESSARY
     Dates: start: 20211114, end: 20211118
  2. LORAZEPAM [Suspect]
     Active Substance: LORAZEPAM
     Dosage: 1 MG, 3X/DAY, AS NECESSARY
     Dates: start: 20211119, end: 20211123
  3. LORAZEPAM [Suspect]
     Active Substance: LORAZEPAM
     Dosage: 1 MG, 3X/DAY, AS NECESSARY
     Dates: start: 20220217
  4. TRAMADOL [Interacting]
     Active Substance: TRAMADOL
     Indication: Procedural pain
     Dosage: 100 MG, 2X/DAY
     Route: 048
     Dates: start: 20211114, end: 20211116
  5. TRAMADOL [Interacting]
     Active Substance: TRAMADOL
     Dosage: 25 MG, 4X/DAY
     Route: 048
     Dates: start: 20211117, end: 20211201
  6. TRAMADOL [Interacting]
     Active Substance: TRAMADOL
     Dosage: 50 MG, 4X/DAY, AS NECESSARY
     Route: 048
     Dates: start: 20211112, end: 20220224
  7. CLOMETHIAZOLE EDISYLATE [Suspect]
     Active Substance: CLOMETHIAZOLE EDISYLATE
     Dosage: 315 MG, 1X/DAY
     Route: 048
     Dates: start: 20211110, end: 20211110
  8. CLOMETHIAZOLE EDISYLATE [Suspect]
     Active Substance: CLOMETHIAZOLE EDISYLATE
     Dosage: 192 MG, 4X/DAY, AS NECESSARY
     Route: 048
     Dates: start: 20211113, end: 20211204
  9. CLOMETHIAZOLE EDISYLATE [Suspect]
     Active Substance: CLOMETHIAZOLE EDISYLATE
     Dosage: 192 MG, 1X/DAY
     Route: 048
     Dates: start: 20211115, end: 20211216
  10. QUETIAPINE [Suspect]
     Active Substance: QUETIAPINE
     Dosage: 25 MG, 2X/DAY
     Route: 048
     Dates: start: 20211114, end: 20211115
  11. QUETIAPINE [Suspect]
     Active Substance: QUETIAPINE
     Dosage: 50 MG, 2X/DAY (MORNING, EVENING)
     Route: 048
     Dates: start: 20211116, end: 20211202
  12. CORDARONE [Interacting]
     Active Substance: AMIODARONE HYDROCHLORIDE
     Indication: Atrial fibrillation
     Dosage: 300 MG, 1X/DAY
     Route: 042
     Dates: start: 20211104, end: 20211104
  13. CORDARONE [Interacting]
     Active Substance: AMIODARONE HYDROCHLORIDE
     Dosage: 200 MG, 3X/DAY
     Route: 048
     Dates: start: 20211109, end: 20211122
  14. CORDARONE [Interacting]
     Active Substance: AMIODARONE HYDROCHLORIDE
     Dosage: 200 MG, 1X/DAY
     Route: 048
     Dates: start: 20211123, end: 20220130
  15. MORPHINE [Suspect]
     Active Substance: MORPHINE
     Dosage: 5 MG, IN TOTAL
     Route: 042
     Dates: start: 20211105, end: 20211105
  16. CLONIDINE [Suspect]
     Active Substance: CLONIDINE
     Dosage: 75 UG, 2X/DAY, AS NECESSARY
     Dates: start: 20211105, end: 20211106
  17. ATARAX [Suspect]
     Active Substance: HYDROXYZINE HYDROCHLORIDE
     Dosage: 25 MG, 1X/DAY
     Dates: start: 20211110, end: 20211110
  18. ATARAX [Suspect]
     Active Substance: HYDROXYZINE HYDROCHLORIDE
     Dosage: 25 MG, 3X/DAY
     Dates: start: 20211111, end: 20211112
  19. OXAZEPAM [Suspect]
     Active Substance: OXAZEPAM
     Dosage: 15 MG, 3X/DAY
     Dates: start: 20211113, end: 20211114
  20. ENOXAPARIN SODIUM [Concomitant]
     Active Substance: ENOXAPARIN SODIUM
     Dosage: UNK
     Route: 058
     Dates: start: 20211111
  21. AMLODIPINE [Concomitant]
     Active Substance: AMLODIPINE BESYLATE
     Dosage: UNK UNK, AS NEEDED
     Route: 048
     Dates: start: 20211106
  22. AMLODIPINE [Concomitant]
     Active Substance: AMLODIPINE BESYLATE
     Dosage: UNK UNK, AS NEEDED
     Route: 048
     Dates: start: 20211109
  23. EZETIMIBE [Concomitant]
     Active Substance: EZETIMIBE
     Dosage: 10 MG
     Route: 048
     Dates: start: 20211111
  24. LEVETIRACETAM [Concomitant]
     Active Substance: LEVETIRACETAM
     Dosage: UNK
     Route: 048
     Dates: start: 20211107
  25. ASPIRIN DL-LYSINE [Concomitant]
     Active Substance: ASPIRIN DL-LYSINE
     Dosage: UNK
     Route: 048
     Dates: start: 20211117
  26. MOVICOL [Concomitant]
     Active Substance: POLYETHYLENE GLYCOL 3350\POTASSIUM CHLORIDE\SODIUM BICARBONATE\SODIUM CHLORIDE
     Dosage: UNK
     Route: 048
     Dates: start: 20211112
  27. DAFALGAN [Concomitant]
     Active Substance: ACETAMINOPHEN
     Dosage: UNK
     Route: 048
     Dates: start: 20211112
  28. PERINDOPRIL [Concomitant]
     Active Substance: PERINDOPRIL
     Dosage: 10 MG
     Route: 048
     Dates: start: 20211112
  29. SODIUM PICOSULFATE [Concomitant]
     Active Substance: SODIUM PICOSULFATE
     Dosage: UNK
     Route: 048
  30. CRESTOR [Concomitant]
     Active Substance: ROSUVASTATIN CALCIUM
     Dosage: UNK
     Route: 048
     Dates: start: 20211104
  31. ALDACTONE [Concomitant]
     Active Substance: SPIRONOLACTONE
     Dosage: UNK
     Route: 048
     Dates: start: 20211109
  32. NOVASOURCE GI FORTE [Concomitant]
     Indication: Enteral nutrition
     Dosage: UNK
     Dates: start: 20211105
  33. NOVORAPID [Concomitant]
     Active Substance: INSULIN ASPART
     Dosage: ACCORDING TO SCHEDULE
     Route: 058
  34. FREKA-CLYSS [Concomitant]
     Dosage: IN RESERVE IF NO STOOL } 48H
     Route: 054
  35. AMOXICILLIN\CLAVULANIC ACID [Concomitant]
     Active Substance: AMOXICILLIN\CLAVULANIC ACID
     Dosage: UNK
     Dates: start: 20211104, end: 20211105
  36. MOMETASONE FUROATE [Concomitant]
     Active Substance: MOMETASONE FUROATE
     Dosage: UNK
     Route: 042
     Dates: start: 20211104, end: 20211105
  37. DEXAMETHASONE [Concomitant]
     Active Substance: DEXAMETHASONE
     Dosage: UNK
     Dates: start: 20211105, end: 20211107
  38. ACETAMINOPHEN [Concomitant]
     Active Substance: ACETAMINOPHEN
     Dosage: UNK
     Route: 042
     Dates: start: 20211104, end: 20211105
  39. ACETAMINOPHEN [Concomitant]
     Active Substance: ACETAMINOPHEN
     Dosage: UNK
     Route: 048
     Dates: start: 20211105, end: 20211107
  40. SODIUM PHOSPHATES [SODIUM PHOSPHATE] [Concomitant]
     Dosage: UNK
     Dates: start: 20211104, end: 20211107
  41. PIPERACILLIN AND TAZOBACTAM [Concomitant]
     Active Substance: PIPERACILLIN SODIUM\TAZOBACTAM SODIUM
     Dosage: UNK
     Dates: start: 20211106, end: 20211107
  42. METOPROLOL [Concomitant]
     Active Substance: METOPROLOL
     Dosage: UNK
     Route: 042
     Dates: start: 20211104, end: 20211104
  43. METOPROLOL [Concomitant]
     Active Substance: METOPROLOL
     Dosage: UNK
     Route: 042
     Dates: start: 20211108, end: 20211108
  44. EMPAGLIFLOZIN\METFORMIN HYDROCHLORIDE [Concomitant]
     Active Substance: EMPAGLIFLOZIN\METFORMIN HYDROCHLORIDE
     Dosage: UNK
     Dates: start: 20211105, end: 20211107
  45. ASPIRIN [Concomitant]
     Active Substance: ASPIRIN
     Dosage: UNK
     Dates: start: 20211112, end: 20211116
  46. MOXONIDINE [Concomitant]
     Active Substance: MOXONIDINE
     Dosage: UNK
     Dates: start: 20211109, end: 20211110
  47. MOXONIDINE [Concomitant]
     Active Substance: MOXONIDINE
     Dosage: UNK
     Dates: start: 20211111, end: 20211111
  48. MELATONIN [Concomitant]
     Active Substance: MELATONIN
     Dosage: UNK
     Dates: start: 20211113, end: 20211115
  49. POTASSIUM CITRATE [Concomitant]
     Active Substance: POTASSIUM CITRATE
     Dosage: UNK
     Dates: start: 20211114, end: 20211116
  50. MIDAZOLAM [Concomitant]
     Active Substance: MIDAZOLAM
     Indication: Psychomotor hyperactivity
     Dosage: 2.5 MG
     Route: 042
     Dates: start: 20211114, end: 20211115

REACTIONS (5)
  - Respiratory failure [Recovered/Resolved]
  - Depressed level of consciousness [Recovered/Resolved]
  - Trismus [Recovered/Resolved]
  - Confusional state [Recovered/Resolved]
  - Drug interaction [Recovered/Resolved]

NARRATIVE: CASE EVENT DATE: 20211101
